FAERS Safety Report 4489227-0 (Version None)
Quarter: 2004Q4

REPORT INFORMATION
  Report Type: 
  Country: None (occurrence: None)
  Receive Date: 20041029
  Receipt Date: 20020322
  Transmission Date: 20050328
  Serious: Yes (Hospitalization, Disabling, Other)
  Sender: FDA-Public Use
  Company Number: US-MERCK-0203USA02484

PATIENT
  Age: 80 Year
  Sex: Female

DRUGS (3)
  1. VIOXX [Suspect]
     Indication: PAIN
     Route: 048
     Dates: start: 20011101, end: 20020301
  2. VIOXX [Suspect]
     Route: 048
     Dates: start: 20030101, end: 20030101
  3. LIPITOR [Concomitant]
     Route: 065

REACTIONS (6)
  - ADVERSE EVENT [None]
  - BLOOD PRESSURE INCREASED [None]
  - CONFUSIONAL STATE [None]
  - HYPOAESTHESIA [None]
  - MUSCULOSKELETAL STIFFNESS [None]
  - TRANSIENT ISCHAEMIC ATTACK [None]
